FAERS Safety Report 20438235 (Version 1)
Quarter: 2022Q1

REPORT INFORMATION
  Report Type: Spontaneous
  Country: JP (occurrence: JP)
  Receive Date: 20220207
  Receipt Date: 20220207
  Transmission Date: 20220423
  Serious: Yes (Other)
  Sender: FDA-Public Use
  Company Number: JP-OTSUKA-2022_004121

PATIENT
  Age: 43 Year
  Sex: Male

DRUGS (1)
  1. SAMSCA [Suspect]
     Active Substance: TOLVAPTAN
     Indication: Congenital cystic kidney disease
     Dosage: 90/DAILY DOSE, UNK
     Route: 048

REACTIONS (3)
  - Renal impairment [Recovering/Resolving]
  - Fluid intake reduced [Unknown]
  - Blood sodium increased [Unknown]
